FAERS Safety Report 13834786 (Version 1)
Quarter: 2017Q3

REPORT INFORMATION
  Report Type: Other
  Country: GB (occurrence: GB)
  Receive Date: 20170804
  Receipt Date: 20170804
  Transmission Date: 20171127
  Serious: Yes (Life-Threatening)
  Sender: FDA-Public Use
  Company Number: GB-ALEXION PHARMACEUTICALS INC.-A201708746

PATIENT
  Age: 58 Year
  Sex: Female
  Weight: 57 kg

DRUGS (3)
  1. LEMTRADA [Concomitant]
     Active Substance: ALEMTUZUMAB
     Indication: PRODUCT USED FOR UNKNOWN INDICATION
     Route: 065
  2. SOLIRIS [Suspect]
     Active Substance: ECULIZUMAB
     Indication: THROMBOTIC MICROANGIOPATHY
     Dosage: 900 MG, QW
     Route: 042
     Dates: start: 20170609, end: 20170707
  3. SOLIRIS [Suspect]
     Active Substance: ECULIZUMAB
     Indication: OFF LABEL USE

REACTIONS (2)
  - Progressive multifocal leukoencephalopathy [Not Recovered/Not Resolved]
  - Off label use [Unknown]

NARRATIVE: CASE EVENT DATE: 20170713
